FAERS Safety Report 8129032-7 (Version None)
Quarter: 2012Q1

REPORT INFORMATION
  Report Type: 
  Country: None (occurrence: None)
  Receive Date: 20120210
  Receipt Date: 20110525
  Transmission Date: 20120608
  Serious: No
  Sender: FDA-Public Use
  Company Number: US-BRISTOL-MYERS SQUIBB COMPANY-15961006

PATIENT

DRUGS (1)
  1. ORENCIA [Suspect]

REACTIONS (2)
  - NAUSEA [None]
  - HEADACHE [None]
